FAERS Safety Report 6603738-0 (Version None)
Quarter: 2010Q1

REPORT INFORMATION
  Report Type: 
  Country: None (occurrence: None)
  Receive Date: 20100226
  Receipt Date: 20090202
  Transmission Date: 20100710
  Serious: No
  Sender: FDA-Public Use
  Company Number: A0763235A

PATIENT
  Age: 26 Year
  Sex: Female
  Weight: 88.2 kg

DRUGS (3)
  1. LAMICTAL CD [Suspect]
     Route: 048
     Dates: start: 20081124, end: 20090112
  2. PRILOSEC [Concomitant]
  3. COPAXONE [Concomitant]
     Indication: MULTIPLE SCLEROSIS
     Route: 030
     Dates: start: 20081107

REACTIONS (2)
  - EXFOLIATIVE RASH [None]
  - RASH FOLLICULAR [None]
